FAERS Safety Report 7508237-X (Version None)
Quarter: 2011Q2

REPORT INFORMATION
  Report Type: 
  Country: None (occurrence: None)
  Receive Date: 20110519
  Receipt Date: 20110509
  Transmission Date: 20111010
  Serious: Yes (Other)
  Sender: FDA-Public Use
  Company Number: IPC201105-001505

PATIENT

DRUGS (2)
  1. REGLAN [Suspect]
     Dates: start: 19870101, end: 20090101
  2. METOCLOPRAMIDE HYDROCHLORIDE [Suspect]
     Dates: start: 19870101, end: 20090101

REACTIONS (2)
  - RESTLESSNESS [None]
  - RESTLESS LEGS SYNDROME [None]
